FAERS Safety Report 23347374 (Version 2)
Quarter: 2024Q1

REPORT INFORMATION
  Report Type: Report from Study
  Country: US (occurrence: US)
  Receive Date: 20231228
  Receipt Date: 20240108
  Transmission Date: 20240409
  Serious: No
  Sender: FDA-Public Use
  Company Number: US-PFIZER INC-202300450377

PATIENT
  Age: 74 Year
  Sex: Female

DRUGS (1)
  1. INLYTA [Suspect]
     Active Substance: AXITINIB
     Dosage: 3 MG, 2X/DAY (1MG TO TAKE 3 TABLETS (3MG) PO(PER ORAL) Q(EVERY) 12 HOURS)
     Route: 048

REACTIONS (1)
  - Diarrhoea [Unknown]
